FAERS Safety Report 8598150-1 (Version None)
Quarter: 2012Q3

REPORT INFORMATION
  Report Type: 
  Country: None (occurrence: None)
  Receive Date: 20120816
  Receipt Date: 20120807
  Transmission Date: 20120928
  Serious: Yes (Other)
  Sender: FDA-Public Use
  Company Number: US-BAYER-2012-034834

PATIENT
  Age: 44 Year
  Sex: Female
  Weight: 54.422 kg

DRUGS (2)
  1. YAZ [Suspect]
     Dosage: UNK
     Dates: start: 20060301, end: 20100801
  2. YAZ [Suspect]
     Dosage: UNK
     Dates: start: 20060401, end: 20100801

REACTIONS (4)
  - THROMBOPHLEBITIS SUPERFICIAL [None]
  - PAIN [None]
  - INJURY [None]
  - MENTAL DISORDER [None]
